FAERS Safety Report 11929442 (Version 2)
Quarter: 2016Q1

REPORT INFORMATION
  Report Type: Spontaneous
  Country: JP (occurrence: JP)
  Receive Date: 20160120
  Receipt Date: 20160307
  Transmission Date: 20160526
  Serious: Yes (Other)
  Sender: FDA-Public Use
  Company Number: PHJP2016JP001156

PATIENT
  Sex: Female

DRUGS (4)
  1. NEUPRO [Concomitant]
     Active Substance: ROTIGOTINE
     Indication: PRODUCT USED FOR UNKNOWN INDICATION
     Dosage: UNK
     Route: 065
  2. COMTAN [Suspect]
     Active Substance: ENTACAPONE
     Indication: PRODUCT USED FOR UNKNOWN INDICATION
     Dosage: 300 MG, UNK
     Route: 048
  3. STALEVO [Suspect]
     Active Substance: CARBIDOPA\ENTACAPONE\LEVODOPA
     Indication: PARKINSON^S DISEASE
     Dosage: 1 DF, QID
     Route: 048
  4. STALEVO [Suspect]
     Active Substance: CARBIDOPA\ENTACAPONE\LEVODOPA
     Dosage: 1/4 TABLET
     Route: 048

REACTIONS (16)
  - Akinesia [Unknown]
  - Restlessness [Unknown]
  - Urinary incontinence [Unknown]
  - Fall [Unknown]
  - Drug effect decreased [Unknown]
  - Mental impairment [Unknown]
  - Dementia with Lewy bodies [Unknown]
  - Decreased appetite [Unknown]
  - Hallucination [Unknown]
  - Impulsive behaviour [Unknown]
  - Hypovolaemia [Unknown]
  - Somnolence [Unknown]
  - Confusional state [Unknown]
  - Dysphagia [Unknown]
  - Delusion [Unknown]
  - Hallucination, auditory [Unknown]
